FAERS Safety Report 19134074 (Version 3)
Quarter: 2021Q2

REPORT INFORMATION
  Report Type: Spontaneous
  Country: GB (occurrence: GB)
  Receive Date: 20210414
  Receipt Date: 20210504
  Transmission Date: 20210717
  Serious: Yes (Hospitalization, Other)
  Sender: FDA-Public Use
  Company Number: GB-PFIZER INC-2021219826

PATIENT
  Age: 67 Year
  Sex: Male
  Weight: 122 kg

DRUGS (11)
  1. REMSIMA [Suspect]
     Active Substance: INFLIXIMAB
     Dosage: 665 MG, OVER 30 MINUTES
     Route: 042
  2. REMSIMA [Suspect]
     Active Substance: INFLIXIMAB
     Dosage: 665 MG, OVER 30 MINUTES
     Route: 042
  3. REMSIMA [Suspect]
     Active Substance: INFLIXIMAB
     Indication: CROHN^S DISEASE
     Dosage: 610 MG, CYCLIC (EVERY 6 WEEKS (6 WEEKLY INFUSION))
     Route: 042
     Dates: start: 20210126
  4. SODIUM CHLORIDE 0.9% [Suspect]
     Active Substance: SODIUM CHLORIDE
     Dosage: 490 MILLIGRAM COMPOUNDED IN A 250 ML BAG OF SODIUM CHLORIDE, EVERY 6 WEEKS (6 WEEKLY)
     Route: 042
  5. SODIUM CHLORIDE 0.9% [Suspect]
     Active Substance: SODIUM CHLORIDE
     Dosage: OVER 30 MINUTES
     Route: 042
  6. REMSIMA [Suspect]
     Active Substance: INFLIXIMAB
     Indication: RHEUMATOID ARTHRITIS
     Dosage: 490 MG (COMPOUNDED IN A 250 MG BAG OF SODIUM CHLORIDE, EVERY 6 WEEKS (6 WEEKLY))
     Route: 042
  7. REMSIMA [Suspect]
     Active Substance: INFLIXIMAB
     Dosage: 665 MG, OVER 30 MINUTES
     Route: 042
  8. WATER FOR INJECTION [Suspect]
     Active Substance: WATER
     Indication: MEDICATION DILUTION
     Dosage: OVER 30 MINUTES
     Route: 042
  9. SODIUM CHLORIDE 0.9% [Suspect]
     Active Substance: SODIUM CHLORIDE
     Indication: MEDICATION DILUTION
     Dosage: OVER 30 MINUTES
     Route: 042
  10. WATER FOR INJECTION [Suspect]
     Active Substance: WATER
     Dosage: OVER 30 MINUTES
     Route: 042
  11. BD POSIFLUSH [SODIUM CHLORIDE] [Suspect]
     Active Substance: SODIUM CHLORIDE
     Indication: CATHETER MANAGEMENT
     Dosage: UNK
     Route: 042

REACTIONS (5)
  - Intentional dose omission [Unknown]
  - Cellulitis [Recovering/Resolving]
  - Flatulence [Unknown]
  - Lymphoma [Not Recovered/Not Resolved]
  - Localised infection [Recovered/Resolved]

NARRATIVE: CASE EVENT DATE: 20210215
